FAERS Safety Report 7348857-9 (Version None)
Quarter: 2011Q1

REPORT INFORMATION
  Report Type: 
  Country: None (occurrence: None)
  Receive Date: 20110314
  Receipt Date: 20110303
  Transmission Date: 20110831
  Serious: Yes (Other)
  Sender: FDA-Public Use
  Company Number: AU-EISAI INC-E3810-04497-SPO-AU

PATIENT
  Sex: Male
  Weight: 70 kg

DRUGS (1)
  1. PARIET (RABEPRAZOLE) [Suspect]
     Dosage: UNKNOWN
     Route: 048
     Dates: start: 20101021, end: 20101126

REACTIONS (1)
  - RENAL IMPAIRMENT [None]
